FAERS Safety Report 15302089 (Version 1)
Quarter: 2018Q3

REPORT INFORMATION
  Report Type: Report from Study
  Country: None (occurrence: US)
  Receive Date: 20180821
  Receipt Date: 20180821
  Transmission Date: 20181010
  Serious: Yes (Other)
  Sender: FDA-Public Use
  Company Number: US-ABBVIE-18S-163-2457833-00

PATIENT
  Sex: Male

DRUGS (1)
  1. DUOPA [Suspect]
     Active Substance: CARBIDOPA\LEVODOPA
     Indication: PARKINSON^S DISEASE
     Route: 050

REACTIONS (4)
  - Dyskinesia [Not Recovered/Not Resolved]
  - Apnoea [Not Recovered/Not Resolved]
  - Choking [Not Recovered/Not Resolved]
  - Respiratory disorder [Not Recovered/Not Resolved]
